FAERS Safety Report 21393329 (Version 1)
Quarter: 2022Q3

REPORT INFORMATION
  Report Type: Spontaneous
  Country: DE (occurrence: DE)
  Receive Date: 20220929
  Receipt Date: 20220929
  Transmission Date: 20221026
  Serious: Yes (Hospitalization)
  Sender: FDA-Public Use
  Company Number: None

PATIENT
  Sex: Female
  Weight: 78 kg

DRUGS (2)
  1. PYLERA [Suspect]
     Active Substance: BISMUTH SUBCITRATE POTASSIUM\METRONIDAZOLE\TETRACYCLINE HYDROCHLORIDE
     Indication: Product used for unknown indication
     Dosage: 3-3-3-3, CAPSULE
     Route: 048
  2. Antra MUPS 20mg [Concomitant]
     Dosage: 1-0-0-0, TABLETS
     Route: 048

REACTIONS (8)
  - Night sweats [Unknown]
  - Diarrhoea [Unknown]
  - Dysgeusia [Unknown]
  - Diarrhoea [Unknown]
  - Asthenia [Unknown]
  - Dizziness [Unknown]
  - Taste disorder [Unknown]
  - Faeces discoloured [Unknown]
